FAERS Safety Report 8905786 (Version 2)
Quarter: 2012Q4

REPORT INFORMATION
  Report Type: 
  Country: JP (occurrence: JP)
  Receive Date: 20121113
  Receipt Date: 20121218
  Transmission Date: 20130627
  Serious: Yes (Hospitalization)
  Sender: FDA-Public Use
  Company Number: JP-GLAXOSMITHKLINE-B0818515A

PATIENT
  Age: 63 Year
  Sex: Female

DRUGS (2)
  1. TYKERB [Suspect]
     Indication: BREAST CANCER RECURRENT
     Dosage: 1250MG Per day
     Route: 048
     Dates: start: 20091207, end: 20120501
  2. XELODA [Concomitant]
     Indication: BREAST CANCER RECURRENT
     Dosage: 1200MG Twice per day
     Route: 048
     Dates: start: 20091207, end: 20120501

REACTIONS (3)
  - Thrombocytopenia [Not Recovered/Not Resolved]
  - White blood cell count decreased [Unknown]
  - Red blood cell count decreased [Unknown]
